FAERS Safety Report 7482008-5 (Version None)
Quarter: 2011Q2

REPORT INFORMATION
  Report Type: 
  Country: None (occurrence: None)
  Receive Date: 20110516
  Receipt Date: 20110513
  Transmission Date: 20111010
  Serious: Yes (Hospitalization, Other)
  Sender: FDA-Public Use
  Company Number: BR-EISAI INC-E2020-09125-SOL-BR

PATIENT
  Sex: Female

DRUGS (1)
  1. DONEPEZIL HYDROCHLORIDE [Suspect]
     Dosage: UNKNOWN
     Route: 048
     Dates: start: 20010101, end: 20101101

REACTIONS (5)
  - WEIGHT DECREASED [None]
  - ELECTROLYTE IMBALANCE [None]
  - DEHYDRATION [None]
  - APHASIA [None]
  - ABASIA [None]
